FAERS Safety Report 5478683-7 (Version None)
Quarter: 2007Q4

REPORT INFORMATION
  Report Type: 
  Country: None (occurrence: None)
  Receive Date: 20071005
  Receipt Date: 20070925
  Transmission Date: 20080405
  Serious: Yes (Death)
  Sender: FDA-Public Use
  Company Number: DE-ABBOTT-07P-062-0360228-00

PATIENT
  Sex: Female
  Weight: 116 kg

DRUGS (12)
  1. ZEMPLAR [Suspect]
     Indication: HYPERPARATHYROIDISM SECONDARY
     Route: 042
     Dates: start: 20061116, end: 20070213
  2. CANDESARTAN CILEXETIL [Concomitant]
     Indication: HYPERTENSION
  3. CELIPROLOL HYDROCHLORIDE [Concomitant]
     Indication: HYPERTENSION
  4. TORSEMIDE [Concomitant]
     Indication: RENAL FAILURE
  5. LEVOTHYROXINE SODIUM [Concomitant]
     Indication: HYPOTHYROIDISM
  6. ESOMEPRAZOLE MAGNESIUM [Concomitant]
     Indication: GASTRITIS
  7. COLECALCIFEROL [Concomitant]
     Indication: VITAMIN D DEFICIENCY
  8. TRAMADOL HCL [Concomitant]
     Indication: PAIN
  9. TRAMADOL HCL [Concomitant]
  10. LOVASTATIN [Concomitant]
     Indication: HYPERLIPIDAEMIA
  11. EPOETIN BETA [Concomitant]
     Indication: NEPHROGENIC ANAEMIA
  12. FERRIC SODIUM GLUCONATE COMPLEX [Concomitant]
     Indication: IRON DEFICIENCY

REACTIONS (2)
  - CONVULSION [None]
  - SUDDEN CARDIAC DEATH [None]
